FAERS Safety Report 8921814 (Version 3)
Quarter: 2013Q1

REPORT INFORMATION
  Report Type: Report from Study
  Country: GB (occurrence: GB)
  Receive Date: 20121121
  Receipt Date: 20130102
  Transmission Date: 20140127
  Serious: Yes (Other)
  Sender: FDA-Public Use
  Company Number: GB-PFIZER INC-2012286648

PATIENT
  Age: 63 Year
  Sex: Male
  Weight: 103 kg

DRUGS (1)
  1. IBUPROFEN [Suspect]
     Indication: OSTEOARTHRITIS
     Dosage: 400 MG, 3 TIMES DAILY
     Route: 048
     Dates: start: 20090511

REACTIONS (1)
  - Rectal haemorrhage [Not Recovered/Not Resolved]
